FAERS Safety Report 13678625 (Version 2)
Quarter: 2017Q2

REPORT INFORMATION
  Report Type: Spontaneous
  Country: US (occurrence: US)
  Receive Date: 20170622
  Receipt Date: 20170628
  Transmission Date: 20170830
  Serious: Yes (Other)
  Sender: FDA-Public Use
  Company Number: US-EMERGENT BIOSOLUTIONS-17BA00035SP

PATIENT
  Age: 32 Year
  Sex: Male
  Weight: 84.35 kg

DRUGS (4)
  1. BAT [Suspect]
     Active Substance: EQUINE BOTULINUM NEUROTOXIN A/B/C/D/E/F/G IMMUNE FAB2
     Indication: BOTULISM
     Dosage: 18 ML, SINGLE
     Route: 042
     Dates: start: 20170428, end: 20170428
  2. ENLON [Concomitant]
     Active Substance: EDROPHONIUM CHLORIDE
     Dosage: 2 MG, SINGLE
     Route: 042
     Dates: start: 20170428, end: 20170428
  3. IMMUNE GLOBULIN, INTRAVENOUS [Concomitant]
     Active Substance: HUMAN IMMUNOGLOBULIN G
     Indication: PARALYSIS
     Dosage: 30 G, QD
     Route: 042
     Dates: start: 20170430, end: 20170504
  4. IMMUNE GLOBULIN, INTRAVENOUS [Concomitant]
     Active Substance: HUMAN IMMUNOGLOBULIN G
     Indication: BOTULISM

REACTIONS (1)
  - Pneumonia [Recovered/Resolved]

NARRATIVE: CASE EVENT DATE: 20170501
